FAERS Safety Report 9960821 (Version 1)
Quarter: 2014Q1

REPORT INFORMATION
  Report Type: Spontaneous
  Country: US (occurrence: None)
  Receive Date: 20140304
  Receipt Date: 20140304
  Transmission Date: 20141002
  Serious: No
  Sender: FDA-Public Use
  Company Number: None

PATIENT
  Sex: 0

DRUGS (1)
  1. ROCURONIUM [Suspect]
     Indication: NEUROMUSCULAR BLOCKADE
     Dates: start: 20140220, end: 20140228

REACTIONS (4)
  - Drug effect decreased [None]
  - Muscle twitching [None]
  - Tremor [None]
  - Hiccups [None]
